FAERS Safety Report 6381354-6 (Version None)
Quarter: 2009Q3

REPORT INFORMATION
  Report Type: 
  Country: None (occurrence: None)
  Receive Date: 20090923
  Receipt Date: 20090908
  Transmission Date: 20100115
  Serious: Yes (Hospitalization)
  Sender: FDA-Public Use
  Company Number: 2009AL005887

PATIENT
  Age: 87 Year
  Sex: Male

DRUGS (3)
  1. GABAPENTIN [Suspect]
     Indication: MUSCULOSKELETAL PAIN
     Dosage: 600 MG;X1
  2. GOSERELIN [Concomitant]
  3. RAMIPRIL + HYDROCHLOROTHIAZIDE [Concomitant]

REACTIONS (4)
  - ABASIA [None]
  - CEREBRAL ISCHAEMIA [None]
  - DYSKINESIA [None]
  - MYOCLONUS [None]
